FAERS Safety Report 10169304 (Version 2)
Quarter: 2014Q2

REPORT INFORMATION
  Report Type: Spontaneous
  Country: US (occurrence: US)
  Receive Date: 20140513
  Receipt Date: 20140617
  Transmission Date: 20141212
  Serious: Yes (Other)
  Sender: FDA-Public Use
  Company Number: US-PFIZER INC-2014129607

PATIENT
  Age: 70 Year
  Sex: Female
  Weight: 53.52 kg

DRUGS (1)
  1. CELECOXIB [Suspect]
     Indication: ARTHRALGIA
     Dosage: UNK

REACTIONS (5)
  - Hepatitis C [Recovered/Resolved]
  - Cardiac disorder [Unknown]
  - Liver disorder [Recovered/Resolved]
  - Jaundice [Recovered/Resolved]
  - Hypertension [Recovered/Resolved]
